FAERS Safety Report 7327694-5 (Version None)
Quarter: 2011Q1

REPORT INFORMATION
  Report Type: 
  Country: None (occurrence: None)
  Receive Date: 20110303
  Receipt Date: 20100901
  Transmission Date: 20110831
  Serious: Yes (Hospitalization)
  Sender: FDA-Public Use
  Company Number: US-BAYER-201010688NA

PATIENT
  Sex: Female
  Weight: 105.22 kg

DRUGS (14)
  1. HYDROCODONE BITARTRATE [Concomitant]
  2. SINGULAIR [Concomitant]
  3. TRAMADOL HCL CF [Concomitant]
  4. YAZ [Suspect]
     Dosage: UNK
     Dates: start: 20081001, end: 20090711
  5. MAVIK [Concomitant]
     Indication: HYPERTENSION
     Dosage: UNK
     Dates: start: 20020101
  6. YAZ [Suspect]
     Indication: OVARIAN CYST
     Dosage: 1 DF (DAILY DOSE), QD, ORAL
     Route: 048
     Dates: start: 20090223, end: 20090815
  7. DOC-Q-LACE [Concomitant]
  8. IMITREX [Concomitant]
  9. LEVAQUIN [Concomitant]
  10. PROVENTIL [Concomitant]
  11. PROAIR HFA [Concomitant]
  12. NAPROXEN [Concomitant]
  13. IBUPROFEN [Concomitant]
  14. DIPHENHYDRAMINE [Concomitant]

REACTIONS (1)
  - DEEP VEIN THROMBOSIS [None]
